FAERS Safety Report 9735640 (Version 1)
Quarter: 2013Q4

REPORT INFORMATION
  Report Type: Spontaneous
  Country: US (occurrence: None)
  Receive Date: 20131204
  Receipt Date: 20131204
  Transmission Date: 20140711
  Serious: Yes (Death, Hospitalization)
  Sender: FDA-Public Use
  Company Number: US-ALKEM-000257

PATIENT
  Age: 60 Year
  Sex: Male

DRUGS (2)
  1. METFORMIN (METFORMIN) [Suspect]
     Dosage: ORAL
     Route: 048
  2. SIMVASTATIN (SIMVASTATIN) [Suspect]

REACTIONS (3)
  - Overdose [None]
  - Cardio-respiratory arrest [None]
  - Exposure via ingestion [None]
